FAERS Safety Report 4431528-6 (Version None)
Quarter: 2004Q3

REPORT INFORMATION
  Report Type: 
  Country: None (occurrence: None)
  Receive Date: 20040824
  Receipt Date: 20040811
  Transmission Date: 20050211
  Serious: Yes (Other)
  Sender: FDA-Public Use
  Company Number: PHBS2004NZ10840

PATIENT

DRUGS (3)
  1. CLOZARIL [Suspect]
     Dosage: 700 MG/D
     Route: 048
  2. VALPROATE SODIUM [Concomitant]
     Dosage: UNK, UNK
  3. QUETIAPINE [Concomitant]
     Dosage: 100 MG, BID

REACTIONS (4)
  - CONFUSIONAL STATE [None]
  - CONVULSION [None]
  - DISORIENTATION [None]
  - ENCEPHALOPATHY [None]
